FAERS Safety Report 24907995 (Version 1)
Quarter: 2025Q1

REPORT INFORMATION
  Report Type: Spontaneous
  Country: US (occurrence: US)
  Receive Date: 20250131
  Receipt Date: 20250131
  Transmission Date: 20250409
  Serious: No
  Sender: JOHNSON AND JOHNSON
  Company Number: US-JNJFOC-20250177908

PATIENT
  Sex: Female

DRUGS (1)
  1. REMICADE [Suspect]
     Active Substance: INFLIXIMAB
     Indication: Product used for unknown indication
     Route: 041
     Dates: start: 20241111

REACTIONS (11)
  - Condition aggravated [Unknown]
  - Bladder disorder [Unknown]
  - Gastrointestinal disorder [Unknown]
  - Abdominal distension [Unknown]
  - Abdominal pain upper [Unknown]
  - Tremor [Unknown]
  - Hot flush [Unknown]
  - Tinnitus [Unknown]
  - Agitation [Unknown]
  - Infusion related reaction [Unknown]
  - Thinking abnormal [Unknown]
